FAERS Safety Report 6213693-3 (Version None)
Quarter: 2009Q2

REPORT INFORMATION
  Report Type: 
  Country: None (occurrence: None)
  Receive Date: 20090603
  Receipt Date: 20090527
  Transmission Date: 20091009
  Serious: Yes (Hospitalization)
  Sender: FDA-Public Use
  Company Number: PHHY2009DE21010

PATIENT
  Age: 56 Year
  Sex: Female

DRUGS (3)
  1. GLEEVEC [Suspect]
     Indication: GASTROINTESTINAL STROMAL TUMOUR
     Dosage: 400 MG, UNK
     Route: 048
     Dates: start: 20080915, end: 20081128
  2. GLEEVEC [Interacting]
     Dosage: 400 MG, UNK
     Route: 048
     Dates: start: 20090306, end: 20090402
  3. VENLAFAXINE HCL [Interacting]
     Indication: ANXIETY DISORDER
     Dosage: UNK
     Route: 048
     Dates: end: 20090201

REACTIONS (5)
  - BLOOD BILIRUBIN INCREASED [None]
  - DRUG INTERACTION [None]
  - HEPATOTOXICITY [None]
  - JAUNDICE [None]
  - TRANSAMINASES INCREASED [None]
